FAERS Safety Report 7884084-4 (Version None)
Quarter: 2011Q4

REPORT INFORMATION
  Report Type: 
  Country: None (occurrence: None)
  Receive Date: 20111102
  Receipt Date: 20111031
  Transmission Date: 20120403
  Serious: Yes (Other)
  Sender: FDA-Public Use
  Company Number: US-PFIZER INC-2011240393

PATIENT
  Sex: Female
  Weight: 55.782 kg

DRUGS (3)
  1. WELLBUTRIN [Concomitant]
     Indication: ANXIETY
     Dosage: 75 MG, DAILY
     Route: 048
  2. CHANTIX [Suspect]
     Indication: SMOKING CESSATION THERAPY
     Dosage: 0.5 MG, DAILY
     Route: 048
     Dates: start: 20111001, end: 20111001
  3. CHANTIX [Suspect]
     Dosage: 0.5 MG, 2X/DAY
     Route: 048
     Dates: start: 20111001, end: 20111007

REACTIONS (3)
  - HEADACHE [None]
  - LOWER RESPIRATORY TRACT INFECTION [None]
  - NAUSEA [None]
